FAERS Safety Report 6998505-2 (Version None)
Quarter: 2010Q3

REPORT INFORMATION
  Report Type: 
  Country: None (occurrence: None)
  Receive Date: 20100920
  Receipt Date: 20091015
  Transmission Date: 20110219
  Serious: Yes (Other)
  Sender: FDA-Public Use
  Company Number: US-ASTRAZENECA-2007UW11761

PATIENT
  Age: 428 Month
  Sex: Male
  Weight: 90.7 kg

DRUGS (2)
  1. SEROQUEL [Suspect]
     Indication: SCHIZOPHRENIA
     Route: 048
     Dates: start: 20050101, end: 20090101
  2. THORAZINE [Concomitant]
     Dates: start: 20090101

REACTIONS (2)
  - CARDIAC FAILURE CONGESTIVE [None]
  - TYPE 2 DIABETES MELLITUS [None]
